FAERS Safety Report 4892701-6 (Version None)
Quarter: 2006Q1

REPORT INFORMATION
  Report Type: 
  Country: None (occurrence: None)
  Receive Date: 20060125
  Receipt Date: 20060125
  Transmission Date: 20060701
  Serious: No
  Sender: FDA-Public Use
  Company Number: None

PATIENT
  Sex: Male

DRUGS (5)
  1. CLONIDINE [Suspect]
     Indication: HYPERTENSION
     Dosage: 0.2MG , TID, ORAL
     Route: 048
  2. VALSARTAN [Concomitant]
  3. METOPROLOL [Concomitant]
  4. HYDRALAZINE [Concomitant]
  5. HUMULIN 70/30 [Concomitant]

REACTIONS (5)
  - BLOOD PRESSURE INCREASED [None]
  - CONFUSIONAL STATE [None]
  - HEADACHE [None]
  - MEMORY IMPAIRMENT [None]
  - TREATMENT NONCOMPLIANCE [None]
